FAERS Safety Report 5023624-X (Version None)
Quarter: 2006Q2

REPORT INFORMATION
  Report Type: 
  Country: None (occurrence: None)
  Receive Date: 20060606
  Receipt Date: 20060531
  Transmission Date: 20061013
  Serious: Yes (Hospitalization)
  Sender: FDA-Public Use
  Company Number: 002#2#2006-00200

PATIENT
  Age: 91 Year
  Sex: Female
  Weight: 48.0813 kg

DRUGS (6)
  1. REGLAN [Suspect]
     Indication: IMPAIRED GASTRIC EMPTYING
     Dosage: 10MG, 4 IN 1 D, ORAL
     Route: 048
     Dates: start: 20060401, end: 20060526
  2. REGLAN [Suspect]
     Indication: NAUSEA
     Dosage: 10MG, 4 IN 1 D, ORAL
     Route: 048
     Dates: start: 20060401, end: 20060526
  3. REGLAN [Suspect]
     Indication: VOMITING
     Dosage: 10MG, 4 IN 1 D, ORAL
     Route: 048
     Dates: start: 20060401, end: 20060526
  4. METOPROLOL TARTRATE [Concomitant]
  5. PANTOPRAZOLE SODIUM [Concomitant]
  6. RABEPRAZOLE SODIUM [Concomitant]

REACTIONS (27)
  - ABDOMINAL DISTENSION [None]
  - ABDOMINAL WALL NEOPLASM [None]
  - BACK PAIN [None]
  - BLOOD PRESSURE DECREASED [None]
  - CHOKING [None]
  - DEHYDRATION [None]
  - DRUG TOXICITY [None]
  - DYSARTHRIA [None]
  - DYSPHAGIA [None]
  - ERYTHEMA [None]
  - FEELING HOT [None]
  - GASTRITIS [None]
  - HEART RATE INCREASED [None]
  - HYPERHIDROSIS [None]
  - HYPERVIGILANCE [None]
  - JAW DISORDER [None]
  - LACTIC ACIDOSIS [None]
  - MASKED FACIES [None]
  - MOVEMENT DISORDER [None]
  - MUSCLE SPASMS [None]
  - MUSCULOSKELETAL STIFFNESS [None]
  - NUCHAL RIGIDITY [None]
  - RESPIRATORY RATE INCREASED [None]
  - TETANUS [None]
  - THERAPY NON-RESPONDER [None]
  - WEIGHT DECREASED [None]
  - WHITE BLOOD CELL COUNT INCREASED [None]
